FAERS Safety Report 11400590 (Version 1)
Quarter: 2015Q3

REPORT INFORMATION
  Report Type: Spontaneous
  Country: GB (occurrence: GB)
  Receive Date: 20150820
  Receipt Date: 20150820
  Transmission Date: 20151125
  Serious: Yes (Other)
  Sender: FDA-Public Use
  Company Number: PHHY2014GB174372

PATIENT
  Sex: Female

DRUGS (1)
  1. CO-AMOXICLAV [Suspect]
     Active Substance: AMOXICILLIN\CLAVULANIC ACID
     Indication: SEPSIS
     Dosage: UNK MG, TID
     Route: 065
     Dates: start: 201405, end: 2014

REACTIONS (2)
  - Dyspnoea [Unknown]
  - Hyperventilation [Unknown]
